FAERS Safety Report 8784286 (Version 1)
Quarter: 2012Q4

REPORT INFORMATION
  Report Type: Spontaneous
  Country: US (occurrence: None)
  Receive Date: 20120905
  Receipt Date: 20120905
  Transmission Date: 20130627
  Serious: Yes (Death)
  Sender: FDA-Public Use
  Company Number: None

PATIENT
  Age: 79 Year
  Sex: Male
  Weight: 74.84 kg

DRUGS (1)
  1. RITUXAN [Suspect]
     Dosage: one treatment
     Dates: start: 20120822, end: 20120822

REACTIONS (1)
  - Splenic rupture [None]
